FAERS Safety Report 21445197 (Version 1)
Quarter: 2022Q4

REPORT INFORMATION
  Report Type: Spontaneous
  Country: US (occurrence: None)
  Receive Date: 20221010
  Receipt Date: 20221010
  Transmission Date: 20230113
  Serious: No
  Sender: FDA-Public Use
  Company Number: None

PATIENT
  Sex: Female

DRUGS (1)
  1. SKYRIZI [Suspect]
     Active Substance: RISANKIZUMAB-RZAA
     Indication: Psoriasis
     Dosage: FREQUENCY : MONTHLY;?INJECT 1 PEN 150MG UNDER THE SKIN AT WEEK 4 THEN EVERY 12 WEEKS THEREAFTER.;
     Route: 058
     Dates: start: 20220920

REACTIONS (1)
  - Drug ineffective [None]
